FAERS Safety Report 22525046 (Version 2)
Quarter: 2023Q4

REPORT INFORMATION
  Report Type: Spontaneous
  Country: US (occurrence: US)
  Receive Date: 20230606
  Receipt Date: 20231219
  Transmission Date: 20240110
  Serious: No
  Sender: FDA-Public Use
  Company Number: US-BRISTOL-MYERS SQUIBB COMPANY-2023-079386

PATIENT
  Age: 70 Year
  Sex: Male
  Weight: 90.718 kg

DRUGS (1)
  1. REVLIMID [Suspect]
     Active Substance: LENALIDOMIDE
     Indication: Plasma cell myeloma
     Route: 048

REACTIONS (2)
  - Hypoaesthesia [Not Recovered/Not Resolved]
  - Anaemia [Not Recovered/Not Resolved]
